FAERS Safety Report 4291138-0 (Version None)
Quarter: 2004Q1

REPORT INFORMATION
  Report Type: 
  Country: None (occurrence: None)
  Receive Date: 20040211
  Receipt Date: 20031104
  Transmission Date: 20041129
  Serious: No
  Sender: FDA-Public Use
  Company Number: US-GLAXOSMITHKLINE-A0432852A

PATIENT
  Age: 50 Year
  Sex: Female

DRUGS (4)
  1. PAROXETINE [Suspect]
     Indication: DEPRESSION
     Dosage: 40MG PER DAY
     Route: 048
     Dates: start: 20031022
  2. PAXIL [Suspect]
     Indication: DEPRESSION
     Route: 048
  3. CYTOMEL [Concomitant]
  4. OMEPRAZOLE [Concomitant]

REACTIONS (3)
  - ABNORMAL DREAMS [None]
  - FLUSHING [None]
  - NAUSEA [None]
